FAERS Safety Report 9525407 (Version 1)
Quarter: 2013Q3

REPORT INFORMATION
  Report Type: Spontaneous
  Country: US (occurrence: None)
  Receive Date: 20130912
  Receipt Date: 20130912
  Transmission Date: 20140515
  Serious: Yes (Disabling)
  Sender: FDA-Public Use
  Company Number: TIR-02726

PATIENT
  Age: 51 Year
  Sex: Female

DRUGS (1)
  1. TIROSINT [Suspect]
     Indication: HYPOTHYROIDISM
     Dosage: VARYING DOSES, ORAL
     Route: 048
     Dates: start: 201305

REACTIONS (13)
  - Insomnia [None]
  - Temperature intolerance [None]
  - Rash [None]
  - Urticaria [None]
  - Weight increased [None]
  - Arthralgia [None]
  - Chest pain [None]
  - Chest discomfort [None]
  - Hypophagia [None]
  - Joint stiffness [None]
  - Activities of daily living impaired [None]
  - Joint swelling [None]
  - Carpal tunnel syndrome [None]
